FAERS Safety Report 6413295-X (Version None)
Quarter: 2009Q4

REPORT INFORMATION
  Report Type: 
  Country: None (occurrence: None)
  Receive Date: 20091022
  Receipt Date: 20091022
  Transmission Date: 20100525
  Serious: Yes (Life-Threatening)
  Sender: FDA-Public Use
  Company Number: None

PATIENT
  Sex: Female

DRUGS (2)
  1. METOPROLOL SUCCINATE [Suspect]
     Indication: ATRIAL FIBRILLATION
     Dates: start: 20070226, end: 20080915
  2. METOPROLOL SUCCINATE [Suspect]
     Indication: VENTRICULAR TACHYCARDIA
     Dates: start: 20070226, end: 20080915

REACTIONS (1)
  - PALPITATIONS [None]
